FAERS Safety Report 19419127 (Version 1)
Quarter: 2021Q2

REPORT INFORMATION
  Report Type: Spontaneous
  Country: IE (occurrence: IE)
  Receive Date: 20210615
  Receipt Date: 20210615
  Transmission Date: 20210717
  Serious: Yes (Hospitalization, Congenital Anomaly, Other)
  Sender: FDA-Public Use
  Company Number: NVSC2021IE131234

PATIENT
  Sex: Female

DRUGS (3)
  1. FLUOXETINE [Suspect]
     Active Substance: FLUOXETINE HYDROCHLORIDE
     Dosage: UNK (MATERNAL DOSE: 20 MG)
     Route: 064
  2. VALSARTAN. [Suspect]
     Active Substance: VALSARTAN
     Indication: FOETAL EXPOSURE DURING PREGNANCY
     Dosage: UNK (MATERNAL DOSE)
     Route: 064
  3. FLUOXETINE [Suspect]
     Active Substance: FLUOXETINE HYDROCHLORIDE
     Indication: FOETAL EXPOSURE DURING PREGNANCY
     Dosage: UNK (MATERNAL DOSE: 60 MG)
     Route: 064

REACTIONS (10)
  - Ventricular septal defect [Unknown]
  - Intestinal malrotation [Unknown]
  - Atrial septal defect [Unknown]
  - Patent ductus arteriosus [Unknown]
  - Muscle contracture [Unknown]
  - Tricuspid valve incompetence [Unknown]
  - Premature baby [Unknown]
  - Pneumothorax [Unknown]
  - Chronic kidney disease [Unknown]
  - Foetal exposure during pregnancy [Unknown]
